FAERS Safety Report 11191334 (Version 4)
Quarter: 2017Q2

REPORT INFORMATION
  Report Type: Report from Study
  Country: AU (occurrence: AU)
  Receive Date: 20150616
  Receipt Date: 20170519
  Transmission Date: 20170829
  Serious: Yes (Other)
  Sender: FDA-Public Use
  Company Number: PHHY2014AU152974

PATIENT
  Sex: Female

DRUGS (2)
  1. STI 571 [Suspect]
     Active Substance: IMATINIB
     Indication: CHRONIC GRAFT VERSUS HOST DISEASE
     Dosage: 100 MG, QD
     Route: 048
  2. STI 571 [Suspect]
     Active Substance: IMATINIB
     Dosage: 200 MG, QD
     Route: 048
     Dates: start: 20141112, end: 201703

REACTIONS (1)
  - Scleroderma [Unknown]
